FAERS Safety Report 6729466-9 (Version None)
Quarter: 2010Q2

REPORT INFORMATION
  Report Type: 
  Country: None (occurrence: None)
  Receive Date: 20100518
  Receipt Date: 20100506
  Transmission Date: 20101027
  Serious: No
  Sender: FDA-Public Use
  Company Number: US-BIOGENIDEC-2010BI015529

PATIENT
  Age: 62 Year
  Sex: Female

DRUGS (2)
  1. TYSABRI [Suspect]
     Indication: MULTIPLE SCLEROSIS
     Route: 042
     Dates: start: 20091118
  2. AVONEX [Concomitant]
     Indication: MULTIPLE SCLEROSIS
     Route: 030
     Dates: start: 20020716

REACTIONS (6)
  - BRONCHITIS [None]
  - DEPRESSION [None]
  - FATIGUE [None]
  - IMMUNE SYSTEM DISORDER [None]
  - INFLUENZA [None]
  - NASOPHARYNGITIS [None]
